FAERS Safety Report 6193950-X (Version None)
Quarter: 2009Q2

REPORT INFORMATION
  Report Type: 
  Country: None (occurrence: None)
  Receive Date: 20090518
  Receipt Date: 20090507
  Transmission Date: 20091009
  Serious: Yes (Other)
  Sender: FDA-Public Use
  Company Number: PHEH2009US03873

PATIENT
  Age: 80 Year
  Sex: Female

DRUGS (3)
  1. EXELON [Suspect]
     Dosage: 9.5 MG, UNK
     Route: 062
     Dates: start: 20060101
  2. LEVOTHROID [Suspect]
  3. NAMENDA [Suspect]

REACTIONS (9)
  - APPLICATION SITE ERYTHEMA [None]
  - DIZZINESS [None]
  - DRUG INEFFECTIVE [None]
  - FEAR [None]
  - FLUSHING [None]
  - GAIT DISTURBANCE [None]
  - MEMORY IMPAIRMENT [None]
  - PRESYNCOPE [None]
  - TRANSIENT ISCHAEMIC ATTACK [None]
